FAERS Safety Report 10712954 (Version 3)
Quarter: 2015Q2

REPORT INFORMATION
  Report Type: Spontaneous
  Country: US (occurrence: US)
  Receive Date: 20150115
  Receipt Date: 20150514
  Transmission Date: 20150821
  Serious: Yes (Hospitalization, Other)
  Sender: FDA-Public Use
  Company Number: US-UCBSA-2015001021

PATIENT
  Age: 36 Year
  Sex: Male
  Weight: 99.77 kg

DRUGS (1)
  1. CIMZIA [Suspect]
     Active Substance: CERTOLIZUMAB PEGOL
     Indication: CROHN^S DISEASE
     Dosage: 400 MG, EV 4 WEEKS
     Route: 058
     Dates: start: 20140429, end: 2015

REACTIONS (2)
  - Appendicectomy [Not Recovered/Not Resolved]
  - Joint injury [Recovering/Resolving]

NARRATIVE: CASE EVENT DATE: 2014
